FAERS Safety Report 19977306 (Version 2)
Quarter: 2021Q4

REPORT INFORMATION
  Report Type: Spontaneous
  Country: US (occurrence: US)
  Receive Date: 20211020
  Receipt Date: 20211025
  Transmission Date: 20220303
  Serious: Yes (Life-Threatening, Hospitalization, Other)
  Sender: FDA-Public Use
  Company Number: US-SA-2021SA340832

PATIENT
  Sex: Female

DRUGS (2)
  1. LIDOCAINE [Suspect]
     Active Substance: LIDOCAINE
     Dosage: SUBMAXIMALLY DOSED
  2. BUPIVACAINE [Suspect]
     Active Substance: BUPIVACAINE
     Indication: Magnetic resonance imaging spinal
     Dosage: CLINICAL DOSES
     Route: 008

REACTIONS (3)
  - Bundle branch block left [Recovered/Resolved]
  - Circulatory collapse [Recovered/Resolved]
  - Local anaesthetic systemic toxicity [Recovered/Resolved]
